FAERS Safety Report 11789581 (Version 1)
Quarter: 2015Q4

REPORT INFORMATION
  Report Type: Spontaneous
  Country: US (occurrence: None)
  Receive Date: 20151130
  Receipt Date: 20151130
  Transmission Date: 20160305
  Serious: No
  Sender: FDA-Public Use
  Company Number: None

PATIENT
  Age: 55 Year
  Sex: Male

DRUGS (2)
  1. DAKLINZA [Suspect]
     Active Substance: DACLATASVIR
     Indication: CHRONIC HEPATITIS C
     Route: 048
     Dates: start: 20151006, end: 201511
  2. SOVALDI [Concomitant]
     Active Substance: SOFOSBUVIR

REACTIONS (6)
  - Hypertension [None]
  - Drug effect decreased [None]
  - Middle insomnia [None]
  - Palpitations [None]
  - Tinnitus [None]
  - Chest pain [None]

NARRATIVE: CASE EVENT DATE: 201511
